FAERS Safety Report 6138338-2 (Version None)
Quarter: 2009Q1

REPORT INFORMATION
  Report Type: 
  Country: None (occurrence: None)
  Receive Date: 20090327
  Receipt Date: 20090327
  Transmission Date: 20090719
  Serious: Yes (Other)
  Sender: FDA-Public Use
  Company Number: None

PATIENT
  Sex: Male
  Weight: 103.4201 kg

DRUGS (1)
  1. BUPROPION HCL [Suspect]
     Indication: DYSTHYMIC DISORDER
     Dosage: 300 MG ONCE DAILY PO
     Route: 048
     Dates: start: 20080816, end: 20090325

REACTIONS (4)
  - AFFECTIVE DISORDER [None]
  - DRUG EFFECT INCREASED [None]
  - DRUG INEFFECTIVE [None]
  - THERAPEUTIC RESPONSE UNEXPECTED WITH DRUG SUBSTITUTION [None]
